FAERS Safety Report 9698570 (Version 1)
Quarter: 2013Q4

REPORT INFORMATION
  Report Type: Spontaneous
  Country: US (occurrence: US)
  Receive Date: 20131120
  Receipt Date: 20131120
  Transmission Date: 20140711
  Serious: Yes (Death)
  Sender: FDA-Public Use
  Company Number: US-CELGENEUS-163-C4047-13113528

PATIENT
  Sex: 0

DRUGS (3)
  1. CC-4047 [Suspect]
     Indication: PLASMA CELL MYELOMA
     Route: 048
  2. CARFILZOMIB [Suspect]
     Indication: PLASMA CELL MYELOMA
     Dosage: 4.2857 MICROGRAM/SQ. METER
     Route: 041
  3. DEXAMETHASONE [Suspect]
     Indication: PLASMA CELL MYELOMA
     Dosage: 5.7143 MILLIGRAM
     Route: 041

REACTIONS (1)
  - Plasma cell myeloma [Fatal]
